FAERS Safety Report 25886007 (Version 5)
Quarter: 2025Q4

REPORT INFORMATION
  Report Type: Report from Study
  Country: GB (occurrence: GB)
  Receive Date: 20251006
  Receipt Date: 20251216
  Transmission Date: 20260118
  Serious: Yes (Disabling, Other)
  Sender: IPSEN BIOPHARMACEUTICALS, INC.
  Company Number: GB-IPSEN Group, Research and Development-2025-01495

PATIENT
  Age: 49 Year
  Sex: Male

DRUGS (2)
  1. LANREOTIDE ACETATE [Suspect]
     Active Substance: LANREOTIDE ACETATE
     Indication: Neuroendocrine tumour
     Dosage: LANREOTIDE 120MGS GIVEN TO RIGHT UPPER OUTER QUADRANT OF BUTTOCKS, DEEP SC
     Route: 058
     Dates: start: 20240214
  2. LANREOTIDE ACETATE [Suspect]
     Active Substance: LANREOTIDE ACETATE
     Dosage: VIA DEEP SUBCUTANEOUS ROUTE
     Route: 058

REACTIONS (16)
  - Anxiety [Unknown]
  - Mental disorder [Unknown]
  - Condition aggravated [Unknown]
  - Hot flush [Unknown]
  - Diarrhoea [Unknown]
  - Constipation [Unknown]
  - Diarrhoea [Unknown]
  - Hot flush [Unknown]
  - Injection site mass [Unknown]
  - Malaise [Unknown]
  - Injection site pain [Unknown]
  - Fear of injection [Unknown]
  - Diarrhoea [Recovered/Resolved]
  - Product dose omission issue [Unknown]
  - Product administration interrupted [Unknown]
  - Product administration interrupted [Unknown]

NARRATIVE: CASE EVENT DATE: 20251101
